FAERS Safety Report 7300426-2 (Version None)
Quarter: 2011Q1

REPORT INFORMATION
  Report Type: 
  Country: None (occurrence: None)
  Receive Date: 20110217
  Receipt Date: 20110207
  Transmission Date: 20110831
  Serious: No
  Sender: FDA-Public Use
  Company Number: PHEH2009US18515

PATIENT
  Sex: Female

DRUGS (5)
  1. ZOMETA [Suspect]
     Indication: MULTIPLE MYELOMA
     Dosage: 04 MG 3W
     Route: 042
     Dates: start: 20051101
  2. NAXEN [Concomitant]
  3. NORTRIPTYLINE [Concomitant]
  4. REVLIMID [Concomitant]
  5. ALLEGRA [Concomitant]

REACTIONS (2)
  - PAIN [None]
  - ARTHRITIS [None]
